FAERS Safety Report 17529672 (Version 1)
Quarter: 2020Q1

REPORT INFORMATION
  Report Type: Report from Study
  Country: US (occurrence: US)
  Receive Date: 20200312
  Receipt Date: 20200312
  Transmission Date: 20200409
  Serious: Yes (Other)
  Sender: FDA-Public Use
  Company Number: US-ROCHE-2562081

PATIENT
  Sex: Male

DRUGS (2)
  1. ZELBORAF [Suspect]
     Active Substance: VEMURAFENIB
     Dosage: TAKE 4 TABLET(S) BY MOUTH TWICE A DAY IN THE MORNING + IN THE EVENING
     Route: 048
     Dates: start: 20181030
  2. ZELBORAF [Suspect]
     Active Substance: VEMURAFENIB
     Indication: MALIGNANT MELANOMA
     Dosage: TAKE 4 TABLET(S) BY MOUTH TWICE A DAY IN THE MORNING + IN THE EVENING
     Route: 048
     Dates: start: 20140104

REACTIONS (1)
  - Diverticulitis [Unknown]
